FAERS Safety Report 8132289-X (Version None)
Quarter: 2012Q1

REPORT INFORMATION
  Report Type: 
  Country: None (occurrence: None)
  Receive Date: 20120213
  Receipt Date: 20120209
  Transmission Date: 20120608
  Serious: Yes (Death)
  Sender: FDA-Public Use
  Company Number: LV-B.I. PHARMACEUTICALS,INC./RIDGEFIELD-2011-AP-00701AP

PATIENT
  Sex: Male
  Weight: 91 kg

DRUGS (3)
  1. BI 1356+PIOGLITAZONE [Suspect]
     Dosage: 3/1
     Route: 048
     Dates: start: 20110923
  2. BI 1356+PIOGLITAZONE [Suspect]
     Indication: TYPE 2 DIABETES MELLITUS
     Dosage: 4/1
     Route: 048
     Dates: start: 20101022
  3. ROSUVACARD [Concomitant]
     Indication: DYSLIPIDAEMIA
     Dosage: 1 ANZ
     Route: 048
     Dates: start: 20110330

REACTIONS (1)
  - ARTERIOSCLEROSIS CORONARY ARTERY [None]
